FAERS Safety Report 10971568 (Version 2)
Quarter: 2015Q2

REPORT INFORMATION
  Report Type: Spontaneous
  Country: US (occurrence: US)
  Receive Date: 20150331
  Receipt Date: 20150430
  Transmission Date: 20150821
  Serious: Yes (Hospitalization)
  Sender: FDA-Public Use
  Company Number: US-B.I. PHARMACEUTICALS,INC./RIDGEFIELD-2015-BI-15907BP

PATIENT
  Age: 76 Year
  Sex: Male
  Weight: 79 kg

DRUGS (8)
  1. CLOPIDOGREL [Concomitant]
     Active Substance: CLOPIDOGREL BISULFATE
     Indication: MYOCARDIAL INFARCTION
     Dosage: 75 MG
     Route: 048
     Dates: start: 201408
  2. METOPROLOL [Concomitant]
     Active Substance: METOPROLOL
     Indication: MYOCARDIAL INFARCTION
     Dosage: 50 MG
     Route: 048
     Dates: start: 201408
  3. PROAIR HFA [Concomitant]
     Active Substance: ALBUTEROL SULFATE
     Indication: CHRONIC OBSTRUCTIVE PULMONARY DISEASE
     Dosage: FORMULATION: INHALATION SPRAY
     Route: 055
     Dates: start: 2012
  4. ATORVASTATIN [Concomitant]
     Active Substance: ATORVASTATIN
     Indication: MYOCARDIAL INFARCTION
     Dosage: 20 MG
     Route: 048
     Dates: start: 201408
  5. ASPIRIN. [Concomitant]
     Active Substance: ASPIRIN
     Indication: MYOCARDIAL INFARCTION
     Dosage: 81 MG
     Route: 048
     Dates: start: 201408
  6. SPIRIVA [Suspect]
     Active Substance: TIOTROPIUM BROMIDE MONOHYDRATE
     Indication: CHRONIC OBSTRUCTIVE PULMONARY DISEASE
     Dosage: 18 MCG
     Route: 055
     Dates: start: 20141215
  7. SYMBICORT [Concomitant]
     Active Substance: BUDESONIDE\FORMOTEROL FUMARATE DIHYDRATE
     Indication: CHRONIC OBSTRUCTIVE PULMONARY DISEASE
     Dosage: FORMULATION:INHALATION SPRAY; STRENGTH: 160-4.5; DAILY DOSE: 320-9
     Route: 055
     Dates: start: 2012
  8. LOSARTAN [Concomitant]
     Active Substance: LOSARTAN
     Indication: MYOCARDIAL INFARCTION
     Dosage: 50 MG
     Route: 048
     Dates: start: 201408

REACTIONS (2)
  - Product quality issue [Unknown]
  - Oesophageal haemorrhage [Recovered/Resolved]

NARRATIVE: CASE EVENT DATE: 201503
